FAERS Safety Report 4468175-6 (Version None)
Quarter: 2004Q3

REPORT INFORMATION
  Report Type: 
  Country: None (occurrence: None)
  Receive Date: 20040917
  Receipt Date: 20040804
  Transmission Date: 20050211
  Serious: No
  Sender: FDA-Public Use
  Company Number: US-JNJFOC-20040600061

PATIENT
  Sex: Female

DRUGS (2)
  1. ORTHO EVRA [Suspect]
     Indication: CONTRACEPTION
     Dosage: 1 DOSE(S), 1 IN 1 WEEK TRANSDERMAL
     Route: 062
  2. PAXIL [Concomitant]

REACTIONS (3)
  - BLOOD PROLACTIN INCREASED [None]
  - LACTATION DISORDER [None]
  - OLIGOMENORRHOEA [None]
